FAERS Safety Report 11098703 (Version 4)
Quarter: 2015Q3

REPORT INFORMATION
  Report Type: Report from Study
  Country: US (occurrence: US)
  Receive Date: 20150507
  Receipt Date: 20150915
  Transmission Date: 20151125
  Serious: Yes (Other)
  Sender: FDA-Public Use
  Company Number: US-GILEAD-2015-0151195

PATIENT
  Age: 62 Year
  Sex: Male

DRUGS (22)
  1. ELESTAT [Concomitant]
     Active Substance: EPINASTINE HYDROCHLORIDE
  2. B COMPLEX                          /00322001/ [Concomitant]
  3. PROBIOTIC                          /06395501/ [Concomitant]
     Active Substance: BIFIDOBACTERIUM ANIMALIS SUBSP. LACTIS
  4. CALCIUM + MAGNESIUM [Concomitant]
  5. POTASSIUM [Concomitant]
     Active Substance: POTASSIUM
     Dosage: QD
  6. VIAGRA [Concomitant]
     Active Substance: SILDENAFIL CITRATE
     Dosage: UNK, PRN
  7. VITAMIN E [Concomitant]
     Active Substance: .ALPHA.-TOCOPHEROL
  8. LEDIPASVIR/SOFOSBUVIR [Suspect]
     Active Substance: LEDIPASVIR\SOFOSBUVIR
     Indication: CHRONIC HEPATITIS C
     Dosage: 1 DF, UNK
     Route: 048
     Dates: start: 20141119, end: 20150505
  9. N-ACETYL-L-CYSTEINE [Concomitant]
     Dosage: 600 MG, QD
  10. FISH OIL [Concomitant]
     Active Substance: FISH OIL
     Dosage: 600 MG, QD
  11. CHONDROITIN SULFATE [Concomitant]
     Active Substance: SODIUM CHONDROITIN SULFATE
     Dosage: 400 MG, UNK
  12. FLAXSEED [Concomitant]
     Active Substance: FLAX SEED
  13. VITAMIN D3 [Concomitant]
     Active Substance: CHOLECALCIFEROL
  14. ZINC [Concomitant]
     Active Substance: ZINC\ZINC CHLORIDE
     Dosage: UNK, QD
  15. GENTEAL GEL TWIN PACK [Concomitant]
  16. ALPHA LIPOIC ACID [Concomitant]
     Active Substance: .ALPHA.-LIPOIC ACID
     Dosage: 200 MG, UNK
  17. ADVIL [Concomitant]
     Active Substance: IBUPROFEN
     Dosage: 200 MG, QID
  18. PHOSPHATIDYL CHOLINE [Concomitant]
     Active Substance: LECITHIN
  19. FOLIC ACID. [Concomitant]
     Active Substance: FOLIC ACID
     Dosage: 800 UG, UNK
  20. REFRESH OPTIVE [Concomitant]
     Active Substance: CARBOXYMETHYLCELLULOSE SODIUM\GLYCERIN
  21. B-COMPLEET [Concomitant]
     Dosage: UNK
  22. VITAMIN B-6 [Concomitant]
     Active Substance: PYRIDOXINE
     Dosage: 100 MG, QD

REACTIONS (7)
  - Renal disorder [Unknown]
  - Headache [Unknown]
  - Myalgia [Unknown]
  - Arthralgia [Unknown]
  - Hepatic enzyme increased [Unknown]
  - Unevaluable event [Unknown]
  - Blood creatine phosphokinase increased [Unknown]
